FAERS Safety Report 9407209 (Version 1)
Quarter: 2013Q3

REPORT INFORMATION
  Report Type: Spontaneous
  Country: FR (occurrence: FR)
  Receive Date: 20130718
  Receipt Date: 20130718
  Transmission Date: 20140515
  Serious: Yes (Death, Hospitalization)
  Sender: FDA-Public Use
  Company Number: FR-ROCHE-1249958

PATIENT
  Age: 75 Year
  Sex: Female

DRUGS (11)
  1. ROCEPHINE [Suspect]
     Indication: PRODUCT USED FOR UNKNOWN INDICATION
     Route: 042
     Dates: start: 20130120, end: 20130212
  2. RIFAMPICINE [Suspect]
     Indication: PRODUCT USED FOR UNKNOWN INDICATION
     Route: 042
     Dates: start: 20130123, end: 20130217
  3. FOSFOMYCINE [Suspect]
     Indication: PRODUCT USED FOR UNKNOWN INDICATION
     Route: 065
     Dates: start: 20130120, end: 20130212
  4. FUCIDINE (FRANCE) [Suspect]
     Indication: PRODUCT USED FOR UNKNOWN INDICATION
     Route: 065
     Dates: start: 20130212, end: 20130217
  5. FLUCONAZOLE [Suspect]
     Indication: PRODUCT USED FOR UNKNOWN INDICATION
     Route: 065
     Dates: start: 20130214, end: 20130217
  6. PREDNISONE [Concomitant]
  7. ARAVA [Concomitant]
  8. HYPERIUM [Concomitant]
  9. TEVETEN [Concomitant]
  10. ESOMEPRAZOLE [Concomitant]
  11. EZETROL [Concomitant]

REACTIONS (2)
  - Cholestasis [Fatal]
  - Jaundice [Fatal]
